FAERS Safety Report 17052850 (Version 1)
Quarter: 2019Q4

REPORT INFORMATION
  Report Type: Spontaneous
  Country: DE (occurrence: DE)
  Receive Date: 20191120
  Receipt Date: 20191120
  Transmission Date: 20200122
  Serious: Yes (Other)
  Sender: FDA-Public Use
  Company Number: DE-BAUSCH-BL-2019-060914

PATIENT
  Age: 37 Year
  Sex: Female
  Weight: 67.8 kg

DRUGS (8)
  1. CIMZIA [Concomitant]
     Active Substance: CERTOLIZUMAB PEGOL
     Indication: PSORIATIC ARTHROPATHY
     Dosage: 200 (MG/2WK)
     Route: 058
     Dates: start: 20181129, end: 20190216
  2. L-THYROXIN [Concomitant]
     Active Substance: LEVOTHYROXINE SODIUM
     Indication: THYROID HORMONE REPLACEMENT THERAPY
     Dosage: 225 (MICROGRAM/D (BIS 150))
     Route: 048
     Dates: start: 20180510, end: 20190216
  3. CETIRIZINE [Concomitant]
     Active Substance: CETIRIZINE HYDROCHLORIDE
     Indication: SEASONAL ALLERGY
     Route: 048
     Dates: start: 20180501, end: 20180706
  4. PREDNISOLON [Suspect]
     Active Substance: PREDNISOLONE
     Indication: PSORIATIC ARTHROPATHY
     Dosage: 20 (MG/D (BIS 2.5 MG))
     Route: 048
     Dates: start: 20180919, end: 20190216
  5. SULFASALAZINE DELAYED-RELEASE [Concomitant]
     Active Substance: SULFASALAZINE
     Indication: PSORIATIC ARTHROPATHY
     Dosage: 2000 (MG/D)
     Route: 048
     Dates: start: 20180508, end: 20181128
  6. EMSER PASTILLEN [Concomitant]
     Active Substance: ELECTROLYTES NOS
     Indication: NASOPHARYNGITIS
     Route: 049
     Dates: start: 20181220, end: 20181228
  7. FEMIBION [Concomitant]
     Indication: NUTRITIONAL SUPPLEMENTATION
     Route: 048
  8. CYTOTEC [Concomitant]
     Active Substance: MISOPROSTOL
     Indication: LABOUR INDUCTION
     Route: 048
     Dates: start: 20190216, end: 20190216

REACTIONS (2)
  - Gestational diabetes [Recovered/Resolved]
  - Maternal exposure during pregnancy [Unknown]
